FAERS Safety Report 5370609-X (Version None)
Quarter: 2007Q2

REPORT INFORMATION
  Report Type: 
  Country: None (occurrence: None)
  Receive Date: 20070626
  Receipt Date: 20070619
  Transmission Date: 20071010
  Serious: Yes (Hospitalization)
  Sender: FDA-Public Use
  Company Number: US-ASTRAZENECA-2007UW14732

PATIENT
  Age: 63 Year
  Sex: Male

DRUGS (3)
  1. CRESTOR [Suspect]
     Route: 048
  2. DILTIAZEM [Concomitant]
  3. METFORMIN HCL [Concomitant]

REACTIONS (2)
  - MYALGIA [None]
  - VENTRICULAR TACHYCARDIA [None]
